FAERS Safety Report 25631768 (Version 2)
Quarter: 2025Q3

REPORT INFORMATION
  Report Type: Spontaneous
  Country: EU (occurrence: EU)
  Receive Date: 20250801
  Receipt Date: 20250812
  Transmission Date: 20251021
  Serious: Yes (Death, Other)
  Sender: ROCHE
  Company Number: EU-BoehringerIngelheim-2025-BI-085659

PATIENT
  Age: 54 Year
  Sex: Male

DRUGS (1)
  1. ALTEPLASE [Suspect]
     Active Substance: ALTEPLASE
     Indication: Cerebrovascular accident
     Route: 065

REACTIONS (3)
  - Aneurysm ruptured [Fatal]
  - Coma [Unknown]
  - Contraindicated product administered [Unknown]
